FAERS Safety Report 16765313 (Version 4)
Quarter: 2019Q4

REPORT INFORMATION
  Report Type: Spontaneous
  Country: US (occurrence: US)
  Receive Date: 20190903
  Receipt Date: 20191001
  Transmission Date: 20200122
  Serious: Yes (Other)
  Sender: FDA-Public Use
  Company Number: US-AUROBINDO-AUR-APL-2019-056906

PATIENT
  Sex: Male
  Weight: 68 kg

DRUGS (1)
  1. CLOPIDOGREL [Suspect]
     Active Substance: CLOPIDOGREL BISULFATE
     Indication: EPISTAXIS
     Dosage: 1 DOSAGE FORM, ONCE A DAY (STARTED ON 3 WEEKS AGO)
     Route: 065

REACTIONS (2)
  - Diarrhoea haemorrhagic [Recovered/Resolved]
  - Product use in unapproved indication [Unknown]
